FAERS Safety Report 10506835 (Version 1)
Quarter: 2014Q4

REPORT INFORMATION
  Report Type: Spontaneous
  Country: US (occurrence: None)
  Receive Date: 20141007
  Receipt Date: 20141007
  Transmission Date: 20150528
  Serious: Yes (Death, Other)
  Sender: FDA-Public Use
  Company Number: LH201400279

PATIENT
  Age: 0 Day

DRUGS (1)
  1. MAKENA [Suspect]
     Active Substance: HYDROXYPROGESTERONE CAPROATE
     Indication: EXPOSURE DURING PREGNANCY
     Dates: start: 20140813, end: 20140917

REACTIONS (3)
  - Stillbirth [None]
  - Foetal exposure during pregnancy [None]
  - Breech presentation [None]

NARRATIVE: CASE EVENT DATE: 20140923
